FAERS Safety Report 4541584-2 (Version None)
Quarter: 2004Q4

REPORT INFORMATION
  Report Type: 
  Country: None (occurrence: None)
  Receive Date: 20041227
  Receipt Date: 20041216
  Transmission Date: 20050328
  Serious: Yes (Other)
  Sender: FDA-Public Use
  Company Number: 2004116383

PATIENT
  Sex: Male

DRUGS (8)
  1. SPIRONOLACTON (SPIRONOLACTONE) [Suspect]
     Indication: ILL-DEFINED DISORDER
     Route: 064
  2. PENICILLAMINE [Suspect]
     Indication: ILL-DEFINED DISORDER
     Route: 064
  3. FUROSEMIDE [Suspect]
     Indication: ILL-DEFINED DISORDER
     Route: 064
  4. DEXAMETHASONE [Suspect]
     Indication: ILL-DEFINED DISORDER
     Route: 064
  5. POTASSIUM CHLORIDE [Suspect]
     Indication: ILL-DEFINED DISORDER
     Route: 064
  6. ACETAMINOPHEN [Suspect]
     Indication: ILL-DEFINED DISORDER
     Route: 064
  7. ASPIRIN [Suspect]
     Indication: ILL-DEFINED DISORDER
     Route: 064
  8. FERROGRAD C (FERROUS SULFATE EXSICCATED, SODIUM ASCORBATE) [Suspect]
     Indication: ILL-DEFINED DISORDER
     Route: 064

REACTIONS (4)
  - ADRENOGENITAL SYNDROME [None]
  - CRYPTORCHISM [None]
  - DRUG EXPOSURE DURING PREGNANCY [None]
  - GENDER IDENTITY DISORDER [None]
